FAERS Safety Report 17751154 (Version 2)
Quarter: 2021Q2

REPORT INFORMATION
  Report Type: Spontaneous
  Country: US (occurrence: US)
  Receive Date: 20200506
  Receipt Date: 20210430
  Transmission Date: 20210716
  Serious: Yes (Death, Other)
  Sender: FDA-Public Use
  Company Number: US-AMGEN-USASP2020070925

PATIENT
  Sex: Female

DRUGS (1)
  1. PROLIA [Suspect]
     Active Substance: DENOSUMAB
     Indication: OSTEOPOROSIS
     Dosage: 60 MILLIGRAM, ONCE A YEAR
     Route: 065

REACTIONS (4)
  - Organ failure [Unknown]
  - Hepatic cirrhosis [Fatal]
  - Diabetes mellitus [Unknown]
  - Off label use [Unknown]
